FAERS Safety Report 9161533 (Version 1)
Quarter: 2013Q1

REPORT INFORMATION
  Report Type: Spontaneous
  Country: US (occurrence: US)
  Receive Date: 20130313
  Receipt Date: 20130313
  Transmission Date: 20140127
  Serious: No
  Sender: FDA-Public Use
  Company Number: US-009507513-1303USA006367

PATIENT
  Sex: Male

DRUGS (1)
  1. TIMOPTIC [Suspect]
     Indication: GLAUCOMA
     Dosage: 1 GTT, QD
     Route: 047
     Dates: end: 20130308

REACTIONS (3)
  - Eye infection [Recovered/Resolved]
  - Vision blurred [Recovered/Resolved]
  - Dizziness [Unknown]
